FAERS Safety Report 6859329-X (Version None)
Quarter: 2010Q3

REPORT INFORMATION
  Report Type: 
  Country: None (occurrence: None)
  Receive Date: 20100719
  Receipt Date: 20080225
  Transmission Date: 20110219
  Serious: No
  Sender: FDA-Public Use
  Company Number: US-PFIZER INC-2008018978

PATIENT
  Sex: Female
  Weight: 44.5 kg

DRUGS (9)
  1. CHANTIX [Suspect]
     Indication: SMOKING CESSATION THERAPY
     Dates: start: 20080214
  2. FOSAMAX [Concomitant]
     Indication: OSTEOPOROSIS
     Route: 048
  3. CIMETIDINE [Concomitant]
     Route: 048
  4. CIMETIDINE [Concomitant]
     Route: 048
  5. CRESTOR [Concomitant]
     Indication: BLOOD CHOLESTEROL INCREASED
     Route: 048
  6. FISH OIL [Concomitant]
     Route: 048
  7. CALCIUM [Concomitant]
     Route: 048
  8. MULTI-VITAMINS [Concomitant]
     Route: 048
  9. TYLENOL [Concomitant]
     Indication: BACK PAIN
     Route: 048

REACTIONS (4)
  - ABNORMAL DREAMS [None]
  - HOT FLUSH [None]
  - NAUSEA [None]
  - SLEEP DISORDER [None]
